FAERS Safety Report 15042480 (Version 1)
Quarter: 2018Q2

REPORT INFORMATION
  Report Type: Spontaneous
  Country: US (occurrence: US)
  Receive Date: 20180531
  Receipt Date: 20180531
  Transmission Date: 20180711
  Serious: No
  Sender: FDA-Public Use
  Company Number: None

PATIENT
  Age: 87 Year
  Sex: Female

DRUGS (1)
  1. CAPECITABINE TAB [Suspect]
     Active Substance: CAPECITABINE
     Indication: COLON CANCER

REACTIONS (4)
  - Decreased appetite [None]
  - Dysgeusia [None]
  - Muscular weakness [None]
  - Back pain [None]

NARRATIVE: CASE EVENT DATE: 20180531
